FAERS Safety Report 8142675-X (Version None)
Quarter: 2012Q1

REPORT INFORMATION
  Report Type: 
  Country: None (occurrence: None)
  Receive Date: 20120216
  Receipt Date: 20120202
  Transmission Date: 20120608
  Serious: Yes (Other)
  Sender: FDA-Public Use
  Company Number: US-BAUSCH-2012BL000727

PATIENT
  Age: 52 Year
  Sex: Male

DRUGS (8)
  1. BESIVANCE [Suspect]
     Indication: PREOPERATIVE CARE
     Route: 047
     Dates: start: 20120129, end: 20120202
  2. BESIVANCE [Suspect]
     Route: 047
     Dates: start: 20120203
  3. BESIVANCE [Suspect]
     Route: 047
     Dates: start: 20120203
  4. MITOMYCIN [Concomitant]
  5. BESIVANCE [Suspect]
     Indication: POSTOPERATIVE CARE
     Route: 047
     Dates: start: 20120129, end: 20120202
  6. PREDNISOLONE ACETATE [Concomitant]
  7. BESIVANCE [Suspect]
     Route: 047
     Dates: start: 20120203
  8. BESIVANCE [Suspect]
     Indication: OFF LABEL USE
     Route: 047
     Dates: start: 20120129, end: 20120202

REACTIONS (3)
  - CORNEAL EPITHELIAL MICROCYSTS [None]
  - VISUAL ACUITY REDUCED [None]
  - ENDOPHTHALMITIS [None]
